FAERS Safety Report 11180168 (Version 1)
Quarter: 2015Q2

REPORT INFORMATION
  Report Type: Spontaneous
  Country: TW (occurrence: TW)
  Receive Date: 20150611
  Receipt Date: 20150611
  Transmission Date: 20150821
  Serious: Yes (Hospitalization, Other)
  Sender: FDA-Public Use
  Company Number: TW-PFIZER INC-2015193721

PATIENT
  Age: 58 Year
  Sex: Female

DRUGS (1)
  1. ALPRAZOLAM. [Suspect]
     Active Substance: ALPRAZOLAM
     Dosage: 30 TABLETS OF 0.5 MG, UNK

REACTIONS (2)
  - Pulmonary embolism [Recovering/Resolving]
  - Overdose [Recovering/Resolving]
